FAERS Safety Report 6387729-3 (Version None)
Quarter: 2009Q3

REPORT INFORMATION
  Report Type: 
  Country: None (occurrence: None)
  Receive Date: 20090930
  Receipt Date: 20090918
  Transmission Date: 20100115
  Serious: Yes (Death, Hospitalization)
  Sender: FDA-Public Use
  Company Number: GXBR2009US01850

PATIENT
  Age: 30 Year
  Sex: Male

DRUGS (22)
  1. AMPICILLIN [Suspect]
     Indication: OPPORTUNISTIC INFECTION PROPHYLAXIS
     Dates: start: 19960508
  2. SULFADIAZINE [Suspect]
     Dosage: 25 MG, Q8H
  3. HYDROXYZINE HCL [Suspect]
     Dosage: MG, PRN
  4. METHADONE HYDROCHLORIDE [Suspect]
     Dosage: 40 MG, QD
  5. FOLIC ACID [Suspect]
     Dosage: 5 MG, OD
  6. CEFTRIAXONE [Suspect]
     Indication: OPPORTUNISTIC INFECTION PROPHYLAXIS
     Dates: start: 19960508
  7. INVIRASE [Suspect]
     Indication: HIV INFECTION
     Dosage: 600 MG, TID, ORAL
     Route: 048
     Dates: start: 19960501
  8. VERSED [Suspect]
     Indication: AGITATION
     Dates: start: 19960508
  9. TRIMETHOPRIM [Suspect]
     Indication: PROPHYLAXIS
  10. AZT [Suspect]
     Indication: ANTIRETROVIRAL THERAPY
     Dosage: 200 MG, Q8H
  11. LAMIVUDINE [Suspect]
     Indication: ANTIRETROVIRAL THERAPY
     Dosage: 150 MG, Q12H
  12. DILANTIN [Suspect]
     Dosage: 200 MG  Q12H
  13. ETHAMBUTOL (ETHAMBUTOL) [Suspect]
     Indication: OPPORTUNISTIC INFECTION PROPHYLAXIS
     Dosage: 150 MG, QD2SDO
  14. PYRIMETHAMINE TAB [Suspect]
     Dosage: 25 MG, Q8H
  15. ATIVAN [Suspect]
     Indication: AGITATION
     Dates: start: 19960508
  16. HALDOL [Suspect]
     Indication: AGITATION
     Dates: start: 19960508
  17. PEPCID [Suspect]
     Dates: start: 19960508
  18. CLINDAMYCIN HCL [Suspect]
     Dates: start: 19960508
  19. ACYCLOVIR [Suspect]
     Indication: ANTIVIRAL PROPHYLAXIS
     Dates: start: 19960508
  20. MANNITOL [Suspect]
     Dates: start: 19960508
  21. MORPHINE [Suspect]
     Dates: start: 19960509
  22. COCAINE (COCAINE) [Suspect]

REACTIONS (23)
  - AGITATION [None]
  - ATAXIA [None]
  - BLOOD CREATINE PHOSPHOKINASE INCREASED [None]
  - BLOOD MAGNESIUM DECREASED [None]
  - BLOOD PHOSPHORUS DECREASED [None]
  - BLOOD POTASSIUM DECREASED [None]
  - CACHEXIA [None]
  - DRUG SCREEN POSITIVE [None]
  - DYSKINESIA [None]
  - ELECTROCARDIOGRAM QT PROLONGED [None]
  - ENCEPHALITIS HERPES [None]
  - HEADACHE [None]
  - HYPOTENSION [None]
  - LISTERIOSIS [None]
  - MENTAL STATUS CHANGES [None]
  - MUSCLE TWITCHING [None]
  - MUSCULAR WEAKNESS [None]
  - NO THERAPEUTIC RESPONSE [None]
  - PARAPARESIS [None]
  - PUPILS UNEQUAL [None]
  - SPEECH DISORDER [None]
  - TORSADE DE POINTES [None]
  - VENTRICULAR EXTRASYSTOLES [None]
